FAERS Safety Report 23682917 (Version 1)
Quarter: 2024Q1

REPORT INFORMATION
  Report Type: Spontaneous
  Country: AT (occurrence: AT)
  Receive Date: 20240328
  Receipt Date: 20240328
  Transmission Date: 20240410
  Serious: Yes (Hospitalization, Other)
  Sender: FDA-Public Use
  Company Number: AT-AMGEN-AUTSP2024058893

PATIENT
  Age: 26 Year
  Sex: Female

DRUGS (12)
  1. NPLATE [Suspect]
     Active Substance: ROMIPLOSTIM
     Indication: Immune thrombocytopenia
     Dosage: 500 MICROGRAM, QWK
     Route: 065
     Dates: start: 20160616
  2. NPLATE [Suspect]
     Active Substance: ROMIPLOSTIM
     Dosage: UNK (TEMPORARY CESSATION)
     Route: 065
     Dates: end: 202106
  3. NPLATE [Suspect]
     Active Substance: ROMIPLOSTIM
     Dosage: 500 MICROGRAM (RESUMING OF NPLATE THERAPY, FIRST LOW RESPONSE)
     Route: 065
     Dates: start: 2021
  4. NPLATE [Suspect]
     Active Substance: ROMIPLOSTIM
     Dosage: 250 MICROGRAM, QWK (ON PATIENT^S REQUEST DOSE REDUCTION)
     Route: 065
     Dates: start: 20230320
  5. NPLATE [Suspect]
     Active Substance: ROMIPLOSTIM
     Dosage: UNK (DOSE TITRATION UP TO 8 MICROGRAM/KG BODY WEIGHT)
     Route: 065
     Dates: start: 2023
  6. NPLATE [Suspect]
     Active Substance: ROMIPLOSTIM
     Dosage: UNK (DOSE INCREASE TO UP TO 10 MICROGRAM/KG BODY WEIGHT)
     Route: 065
     Dates: start: 2024
  7. NPLATE [Suspect]
     Active Substance: ROMIPLOSTIM
     Dosage: 500 MICROGRAM PER 10 DAYS (CHANGE OF DOSING SCHEME)
     Route: 065
  8. METHYLPREDNISOLONE [Concomitant]
     Active Substance: METHYLPREDNISOLONE
     Dosage: 60 MILLIGRAM (1 MG/KG BODY WEIGHT)
     Route: 048
     Dates: start: 202006
  9. METHYLPREDNISOLONE [Concomitant]
     Active Substance: METHYLPREDNISOLONE
     Dosage: 40 MILLIGRAM (REDUCTION TO 40 MG)
     Route: 048
  10. METHYLPREDNISOLONE [Concomitant]
     Active Substance: METHYLPREDNISOLONE
     Dosage: 4 MILLIGRAM (8 WEEKS LATER SUCCESSIVE REDUCTION OF CORTISONE)
     Route: 048
  11. ELTROMBOPAG OLAMINE [Concomitant]
     Active Substance: ELTROMBOPAG OLAMINE
     Dosage: 25 MILLIGRAM
  12. ELTROMBOPAG OLAMINE [Concomitant]
     Active Substance: ELTROMBOPAG OLAMINE
     Dosage: 75 MILLIGRAM (DOSE INCREASE)

REACTIONS (18)
  - Surgery [Unknown]
  - Platelet count decreased [Unknown]
  - Headache [Recovered/Resolved]
  - White blood cell count increased [Unknown]
  - Lymphocyte count increased [Unknown]
  - Monocyte count increased [Unknown]
  - Granulocyte count increased [Unknown]
  - Granulocytes abnormal [Unknown]
  - Mean cell haemoglobin concentration increased [Unknown]
  - Basophil count increased [Unknown]
  - Lymphocyte count decreased [Unknown]
  - Eosinophil count increased [Unknown]
  - Monocyte count decreased [Unknown]
  - Mean cell haemoglobin decreased [Unknown]
  - Mean cell haemoglobin concentration decreased [Unknown]
  - Platelet count increased [Unknown]
  - Red cell distribution width increased [Unknown]
  - Stress [Unknown]

NARRATIVE: CASE EVENT DATE: 20200615
